FAERS Safety Report 10111329 (Version 5)
Quarter: 2014Q4

REPORT INFORMATION
  Report Type: Report from Study
  Country: DE (occurrence: DE)
  Receive Date: 20140425
  Receipt Date: 20141112
  Transmission Date: 20150528
  Serious: Yes (Other)
  Sender: FDA-Public Use
  Company Number: PHHO2014DE005979

PATIENT
  Age: 74 Year
  Sex: Male
  Weight: 72 kg

DRUGS (3)
  1. SOM230 [Suspect]
     Active Substance: PASIREOTIDE
     Indication: PROSTATE CANCER
     Dosage: 80 MG, Q4W
     Route: 030
     Dates: start: 20140311, end: 20140408
  2. NOVAMINOSULFON [Concomitant]
     Active Substance: METAMIZOLE SODIUM
     Indication: TUMOUR PAIN
     Dosage: 100 MG, 4 PER DAY
     Route: 048
     Dates: start: 20140112, end: 20140408
  3. OXYGESIC [Concomitant]
     Active Substance: OXYCODONE
     Indication: TUMOUR PAIN
     Dosage: 10 MG, TID
     Route: 048
     Dates: start: 20140112, end: 20140408

REACTIONS (1)
  - Hepatotoxicity [Recovered/Resolved]

NARRATIVE: CASE EVENT DATE: 20140408
